FAERS Safety Report 19493070 (Version 1)
Quarter: 2021Q3

REPORT INFORMATION
  Report Type: Spontaneous
  Country: FR (occurrence: FR)
  Receive Date: 20210705
  Receipt Date: 20210705
  Transmission Date: 20211014
  Serious: Yes (Other)
  Sender: FDA-Public Use
  Company Number: NVSC2021FR145814

PATIENT
  Age: 60 Year
  Sex: Female
  Weight: 49 kg

DRUGS (2)
  1. AMOXICILLINE [Suspect]
     Active Substance: AMOXICILLIN
     Indication: ENDOCARDITIS
     Dosage: UNK
     Route: 042
     Dates: start: 20210220, end: 20210223
  2. CEFOTAXIME [Suspect]
     Active Substance: CEFOTAXIME SODIUM
     Indication: ENDOCARDITIS
     Dosage: 2 G, Q6H
     Route: 042
     Dates: start: 20210217, end: 20210219

REACTIONS (2)
  - Urticaria [Recovered/Resolved]
  - Dermatitis exfoliative generalised [Recovered/Resolved]

NARRATIVE: CASE EVENT DATE: 20210220
